FAERS Safety Report 18191582 (Version 2)
Quarter: 2021Q3

REPORT INFORMATION
  Report Type: Spontaneous
  Country: US (occurrence: US)
  Receive Date: 20200825
  Receipt Date: 20210818
  Transmission Date: 20211014
  Serious: Yes (Other)
  Sender: FDA-Public Use
  Company Number: US-SA-2020SA223791

PATIENT
  Age: 54 Year
  Sex: Male

DRUGS (1)
  1. ZANTAC [Suspect]
     Active Substance: RANITIDINE HYDROCHLORIDE
     Indication: DYSPEPSIA
     Dosage: UNK, QD
     Dates: start: 201701, end: 201803

REACTIONS (2)
  - Plasma cell myeloma [Unknown]
  - Gastric cancer [Unknown]

NARRATIVE: CASE EVENT DATE: 20180201
